FAERS Safety Report 17744785 (Version 2)
Quarter: 2020Q2

REPORT INFORMATION
  Report Type: Spontaneous
  Country: NO (occurrence: NO)
  Receive Date: 20200504
  Receipt Date: 20200511
  Transmission Date: 20200714
  Serious: Yes (Other)
  Sender: FDA-Public Use
  Company Number: NO-ROCHE-2592125

PATIENT
  Sex: Female

DRUGS (2)
  1. ROACTEMRA [Suspect]
     Active Substance: TOCILIZUMAB
     Indication: RHEUMATOID ARTHRITIS
     Route: 065
     Dates: start: 2012
  2. NAPROSYN [Concomitant]
     Active Substance: NAPROXEN

REACTIONS (2)
  - Visual impairment [Not Recovered/Not Resolved]
  - Retinopathy [Not Recovered/Not Resolved]
